FAERS Safety Report 6382010-0 (Version None)
Quarter: 2009Q3

REPORT INFORMATION
  Report Type: 
  Country: None (occurrence: None)
  Receive Date: 20090930
  Receipt Date: 20090923
  Transmission Date: 20100115
  Serious: Yes (Life-Threatening, Hospitalization)
  Sender: FDA-Public Use
  Company Number: CH-BAYER-200933123GPV

PATIENT
  Age: 57 Year
  Sex: Male

DRUGS (4)
  1. CIPROFLOXACIN HCL [Suspect]
     Indication: CYSTITIS
     Dosage: TOTAL DAILY DOSE: 1000 MG  UNIT DOSE: 500 MG
     Route: 048
     Dates: start: 20090630, end: 20090703
  2. CIPROFLOXACIN HCL [Suspect]
     Route: 048
     Dates: start: 20090615, end: 20090629
  3. TRIBULUS TERRESTRIS [Suspect]
     Indication: DRUG USE FOR UNKNOWN INDICATION
     Dosage: 1 OR 2 DCF TID
     Route: 048
     Dates: end: 20090701
  4. CLARITHROMYCIN [Concomitant]
     Indication: PNEUMONIA PRIMARY ATYPICAL
     Route: 048
     Dates: start: 20090703, end: 20090711

REACTIONS (19)
  - ALANINE AMINOTRANSFERASE INCREASED [None]
  - BLOOD ALKALINE PHOSPHATASE INCREASED [None]
  - BLOOD AMYLASE INCREASED [None]
  - BLOOD IMMUNOGLOBULIN E INCREASED [None]
  - BLOOD LACTATE DEHYDROGENASE INCREASED [None]
  - BRONCHOALVEOLAR LAVAGE ABNORMAL [None]
  - C-REACTIVE PROTEIN INCREASED [None]
  - COUGH [None]
  - DRUG RASH WITH EOSINOPHILIA AND SYSTEMIC SYMPTOMS [None]
  - EOSINOPHILIA [None]
  - INTERNATIONAL NORMALISED RATIO INCREASED [None]
  - LIPASE INCREASED [None]
  - LYMPHADENOPATHY [None]
  - PANCREATIC DISORDER [None]
  - PULMONARY EOSINOPHILIA [None]
  - PYREXIA [None]
  - RASH [None]
  - RASH MACULO-PAPULAR [None]
  - URTICARIA [None]
